FAERS Safety Report 16821239 (Version 3)
Quarter: 2019Q4

REPORT INFORMATION
  Report Type: Spontaneous
  Country: US (occurrence: US)
  Receive Date: 20190918
  Receipt Date: 20191008
  Transmission Date: 20200122
  Serious: No
  Sender: FDA-Public Use
  Company Number: US-BIOGEN-2019BI00725082

PATIENT
  Sex: Male

DRUGS (5)
  1. AVONEX [Suspect]
     Active Substance: INTERFERON BETA-1A
     Indication: MULTIPLE SCLEROSIS
     Route: 065
  2. AVONEX [Suspect]
     Active Substance: INTERFERON BETA-1A
     Dosage: MAINTENANCE DOSE
     Route: 048
  3. AVONEX [Suspect]
     Active Substance: INTERFERON BETA-1A
     Route: 065
     Dates: start: 20150623, end: 20150831
  4. AVONEX [Suspect]
     Active Substance: INTERFERON BETA-1A
     Dosage: STARTING DOSE
     Route: 048
     Dates: start: 2016, end: 2018
  5. AVONEX [Suspect]
     Active Substance: INTERFERON BETA-1A
     Dosage: MAINTENANCE DOSE
     Route: 048
     Dates: start: 2016, end: 2018

REACTIONS (3)
  - Treatment failure [Unknown]
  - Drug intolerance [Unknown]
  - Influenza like illness [Recovered/Resolved]
